FAERS Safety Report 8201308-4 (Version None)
Quarter: 2012Q1

REPORT INFORMATION
  Report Type: 
  Country: None (occurrence: None)
  Receive Date: 20120312
  Receipt Date: 20120308
  Transmission Date: 20120608
  Serious: Yes (Other)
  Sender: FDA-Public Use
  Company Number: PHFR2012IE001414

PATIENT
  Sex: Female
  Weight: 86 kg

DRUGS (7)
  1. CLOZARIL [Suspect]
     Indication: SCHIZOPHRENIA
     Dosage: 600 MG, (250 MG MANE AND 350 MG NOCTE)
     Route: 048
     Dates: start: 20110331
  2. VALPROATE SODIUM [Concomitant]
     Dosage: 500 MG, NOCTE
     Route: 048
  3. NU-SEALS ASPIRIN [Concomitant]
     Dosage: 75 MG,MANE
     Route: 048
  4. AMISULPRIDE [Concomitant]
     Indication: PSYCHOTIC DISORDER
     Dosage: 200 MG, MANE
  5. NEXIUM [Concomitant]
     Dosage: 40 MG, MANE
     Route: 048
  6. AMISULPRIDE [Concomitant]
     Dosage: REDUCED BY HALF
     Dates: start: 20120227
  7. LIPITOR [Concomitant]
     Dosage: 20 MG, NOCTE
     Route: 048

REACTIONS (8)
  - CHRONIC OBSTRUCTIVE PULMONARY DISEASE [None]
  - BLOOD PROLACTIN INCREASED [None]
  - POOR VENOUS ACCESS [None]
  - GASTRITIS [None]
  - BLOOD CREATINE PHOSPHOKINASE INCREASED [None]
  - PAIN IN EXTREMITY [None]
  - ARTHRITIS [None]
  - BLOOD CHOLESTEROL INCREASED [None]
